FAERS Safety Report 12077087 (Version 1)
Quarter: 2016Q1

REPORT INFORMATION
  Report Type: Report from Study
  Country: CA (occurrence: CA)
  Receive Date: 20160215
  Receipt Date: 20160215
  Transmission Date: 20160526
  Serious: Yes (Death)
  Sender: FDA-Public Use
  Company Number: PHHY2015CA034842

PATIENT
  Age: 55 Year
  Sex: Female

DRUGS (1)
  1. SANDOSTATIN LAR DEPOT [Suspect]
     Active Substance: OCTREOTIDE ACETATE
     Indication: CARCINOID SYNDROME
     Dosage: 30 MG, (QMO) EVERY 4 WEEKS
     Route: 030
     Dates: start: 20150317

REACTIONS (3)
  - Feeling hot [Unknown]
  - Hyperhidrosis [Unknown]
  - Death [Fatal]

NARRATIVE: CASE EVENT DATE: 20150317
